FAERS Safety Report 5514047-5 (Version None)
Quarter: 2007Q4

REPORT INFORMATION
  Report Type: 
  Country: None (occurrence: None)
  Receive Date: 20071109
  Receipt Date: 20071109
  Transmission Date: 20080405
  Serious: Yes (Hospitalization, Other)
  Sender: FDA-Public Use
  Company Number: None

PATIENT
  Age: 56 Year
  Sex: Female
  Weight: 98.9 kg

DRUGS (10)
  1. NITROFURANTOIN [Suspect]
     Indication: URINARY TRACT INFECTION
     Dosage: PO
     Route: 048
  2. LEVOTHYROXINE SODIUM [Concomitant]
  3. DIAZEPAM [Concomitant]
  4. CLONIDINE [Concomitant]
  5. GUANFACINE HYDROCHLORIDE [Concomitant]
  6. TRIAMTERENE AND HYDROCHLOROTHIAZIDE [Concomitant]
  7. LISINOPRIL [Concomitant]
  8. HUMULIN 70/30 [Concomitant]
  9. DOCUSATE SODIUM [Concomitant]
  10. HYDROCODONE BITARTRATE AND ACETAMINOPHEN [Concomitant]

REACTIONS (6)
  - DRUG HYPERSENSITIVITY [None]
  - EOSINOPHILIA [None]
  - INFECTION [None]
  - LEUKOCYTOSIS [None]
  - LUNG NEOPLASM MALIGNANT [None]
  - PROCEDURAL SITE REACTION [None]
